FAERS Safety Report 19506715 (Version 10)
Quarter: 2022Q3

REPORT INFORMATION
  Report Type: Report from Study
  Country: US (occurrence: US)
  Receive Date: 20210708
  Receipt Date: 20220801
  Transmission Date: 20221026
  Serious: Yes (Other)
  Sender: FDA-Public Use
  Company Number: US-TAKEDA-US202023251

PATIENT
  Sex: Female

DRUGS (4)
  1. HUMAN IMMUNOGLOBULIN G [Suspect]
     Active Substance: HUMAN IMMUNOGLOBULIN G
     Indication: Primary immunodeficiency syndrome
     Dosage: UNK
     Route: 065
  2. PFIZER-BIONTECH COVID-19 VACCINE [Suspect]
     Active Substance: TOZINAMERAN
     Indication: COVID-19 immunisation
     Dosage: UNK
     Route: 065
  3. HUMIRA [Concomitant]
     Active Substance: ADALIMUMAB
     Dosage: UNK
     Route: 065
  4. VITAMIN D [Concomitant]
     Active Substance: VITAMIN D NOS
     Dosage: UNK
     Route: 065

REACTIONS (23)
  - Impaired gastric emptying [Unknown]
  - Retching [Unknown]
  - Nervousness [Unknown]
  - Nasopharyngitis [Recovered/Resolved]
  - Oropharyngeal pain [Unknown]
  - Fatigue [Unknown]
  - Arthralgia [Unknown]
  - COVID-19 immunisation [Unknown]
  - Influenza [Unknown]
  - Asthenia [Unknown]
  - Feeling abnormal [Unknown]
  - Cough [Unknown]
  - Obstruction [Unknown]
  - Oxygen saturation abnormal [Unknown]
  - Product dose omission issue [Unknown]
  - Migraine [Unknown]
  - Headache [Unknown]
  - Nausea [Unknown]
  - Malaise [Unknown]
  - Anxiety [Unknown]
  - Vomiting [Unknown]
  - Diarrhoea [Unknown]
  - Sinusitis [Unknown]
